FAERS Safety Report 5890599-0 (Version None)
Quarter: 2008Q3

REPORT INFORMATION
  Report Type: 
  Country: None (occurrence: None)
  Receive Date: 20080922
  Receipt Date: 20080606
  Transmission Date: 20090109
  Serious: No
  Sender: FDA-Public Use
  Company Number: US-BAYER-200710072BWH

PATIENT
  Age: 49 Year
  Sex: Female

DRUGS (3)
  1. AVELOX [Suspect]
     Indication: OROPHARYNGEAL PAIN
     Dosage: TOTAL DAILY DOSE: 400 MG  UNIT DOSE: 400 MG
     Route: 048
     Dates: start: 20070104, end: 20070105
  2. AVELOX [Suspect]
     Dosage: TOTAL DAILY DOSE: 400 MG  UNIT DOSE: 400 MG
     Route: 048
     Dates: start: 20070107, end: 20070107
  3. CEDAX [Suspect]
     Indication: OROPHARYNGEAL PAIN

REACTIONS (3)
  - DYSGEUSIA [None]
  - FATIGUE [None]
  - OCULAR ICTERUS [None]
